FAERS Safety Report 7497537-8 (Version None)
Quarter: 2011Q2

REPORT INFORMATION
  Report Type: 
  Country: None (occurrence: None)
  Receive Date: 20110523
  Receipt Date: 20110510
  Transmission Date: 20111010
  Serious: Yes (Hospitalization, Other)
  Sender: FDA-Public Use
  Company Number: PHHY2011NL40374

PATIENT
  Sex: Male
  Weight: 71 kg

DRUGS (7)
  1. XELODA [Concomitant]
     Indication: PROPHYLACTIC CHEMOTHERAPY
     Dosage: 1300 MG, TWICE DAILY
     Dates: start: 20110307, end: 20110501
  2. METOCLOPRAMIDE [Concomitant]
     Dosage: 10 MG, TID AS NEEDED UP TO THRICE DAILY
     Dates: start: 20110301, end: 20110501
  3. MULTIENZYME [Concomitant]
  4. LISINOPRIL [Concomitant]
     Indication: HYPERTENSION
     Dosage: 10 MG, QD
     Dates: start: 20000101, end: 20110501
  5. METFORMIN [Concomitant]
     Dosage: 500 MG, BID
     Dates: start: 20000101, end: 20110501
  6. AFINITOR [Suspect]
     Indication: PROPHYLACTIC CHEMOTHERAPY
     Dosage: 5 MG, TWICE DAILY
     Dates: start: 20110301, end: 20110501
  7. PANZYTRAT [Concomitant]
     Dosage: THRICE DAILY 2 DOSE FRACTIONS
     Dates: start: 20110301, end: 20110501

REACTIONS (2)
  - ANGIOEDEMA [None]
  - ACQUIRED PHIMOSIS [None]
